FAERS Safety Report 8936681 (Version 2)
Quarter: 2013Q1

REPORT INFORMATION
  Report Type: Report from Study
  Country: US (occurrence: US)
  Receive Date: 20121130
  Receipt Date: 20130313
  Transmission Date: 20140127
  Serious: Yes (Hospitalization)
  Sender: FDA-Public Use
  Company Number: US-ROCHE-1161398

PATIENT
  Age: 62 Year
  Sex: Female
  Weight: 123.49 kg

DRUGS (6)
  1. BEVACIZUMAB [Suspect]
     Indication: COLORECTAL CANCER METASTATIC
     Route: 042
  2. OXALIPLATIN [Suspect]
     Indication: COLORECTAL CANCER METASTATIC
     Route: 042
  3. 5-FLUOROURACIL [Suspect]
     Indication: COLORECTAL CANCER METASTATIC
     Route: 042
  4. MIRALAX [Concomitant]
  5. INHALER (UNK INGREDIENTS) [Concomitant]
     Indication: HYPERSENSITIVITY
  6. INHALER (UNK INGREDIENTS) [Concomitant]
     Indication: ASTHMA

REACTIONS (16)
  - Constipation [Not Recovered/Not Resolved]
  - Hypocalcaemia [Recovering/Resolving]
  - Hypokalaemia [Recovering/Resolving]
  - Staphylococcal infection [Recovered/Resolved]
  - Headache [Not Recovered/Not Resolved]
  - Epistaxis [Not Recovered/Not Resolved]
  - Fatigue [Not Recovered/Not Resolved]
  - Swelling [Not Recovered/Not Resolved]
  - Dehydration [Unknown]
  - Throat irritation [Not Recovered/Not Resolved]
  - Back pain [Not Recovered/Not Resolved]
  - Abasia [Not Recovered/Not Resolved]
  - Rhinorrhoea [Not Recovered/Not Resolved]
  - Nasal congestion [Not Recovered/Not Resolved]
  - Blood calcium decreased [Unknown]
  - Blood potassium decreased [Unknown]
